APPROVED DRUG PRODUCT: ACULAR
Active Ingredient: KETOROLAC TROMETHAMINE
Strength: 0.5%
Dosage Form/Route: SOLUTION/DROPS;OPHTHALMIC
Application: N019700 | Product #001 | TE Code: AT
Applicant: ABBVIE INC
Approved: Nov 9, 1992 | RLD: Yes | RS: Yes | Type: RX